FAERS Safety Report 8284170-3 (Version None)
Quarter: 2012Q2

REPORT INFORMATION
  Report Type: 
  Country: None (occurrence: None)
  Receive Date: 20120413
  Receipt Date: 20111005
  Transmission Date: 20120825
  Serious: No
  Sender: FDA-Public Use
  Company Number: US-ASTRAZENECA-2011SE60133

PATIENT
  Age: 61 Year
  Sex: Female
  Weight: 112.9 kg

DRUGS (3)
  1. ASACOL [Concomitant]
  2. DIOVAN [Concomitant]
  3. NEXIUM [Suspect]
     Indication: GASTROOESOPHAGEAL REFLUX DISEASE
     Route: 048
     Dates: start: 20090101

REACTIONS (1)
  - OFF LABEL USE [None]
